FAERS Safety Report 6060243-0 (Version None)
Quarter: 2009Q1

REPORT INFORMATION
  Report Type: 
  Country: None (occurrence: None)
  Receive Date: 20090129
  Receipt Date: 20090114
  Transmission Date: 20090719
  Serious: Yes (Death, Life-Threatening, Hospitalization)
  Sender: FDA-Public Use
  Company Number: 2008003320

PATIENT
  Age: 73 Year
  Sex: Male
  Weight: 61.2 kg

DRUGS (8)
  1. ERLOTINIB          (ERLOTINIB) [Suspect]
     Indication: LUNG SQUAMOUS CELL CARCINOMA STAGE UNSPECIFIED
     Dosage: (150 MG, QD) ,ORAL
     Route: 048
     Dates: start: 20081118, end: 20081129
  2. AMLODIPINE [Concomitant]
  3. CANDESARTAN CILEXETIL [Concomitant]
  4. LOXOPROFEN (LOXOPROFEN) [Concomitant]
  5. MUCOSTA (REBAMIPIDE) [Concomitant]
  6. LENDORM [Concomitant]
  7. CODEINE PHOSPHATE (CODEINE PHOSPHATE) [Concomitant]
  8. BIO-THREE [Concomitant]

REACTIONS (9)
  - CEREBRAL INFARCTION [None]
  - DEPRESSED LEVEL OF CONSCIOUSNESS [None]
  - DISSEMINATED INTRAVASCULAR COAGULATION [None]
  - HEMIPLEGIA [None]
  - INTERSTITIAL LUNG DISEASE [None]
  - LUNG DISORDER [None]
  - PLEURAL EFFUSION [None]
  - PSEUDOMONAS INFECTION [None]
  - SPUTUM CULTURE POSITIVE [None]
